FAERS Safety Report 15673853 (Version 2)
Quarter: 2019Q2

REPORT INFORMATION
  Report Type: Spontaneous
  Country: US (occurrence: US)
  Receive Date: 20181129
  Receipt Date: 20190501
  Transmission Date: 20190711
  Serious: Yes (Hospitalization, Other)
  Sender: FDA-Public Use
  Company Number: US-PFIZER INC-2018387565

PATIENT
  Age: 84 Year
  Sex: Female
  Weight: 87.9 kg

DRUGS (10)
  1. DIGOXIN. [Concomitant]
     Active Substance: DIGOXIN
     Indication: ATRIAL FIBRILLATION
     Dosage: 125 MG, ALTERNATE DAY(ALTERNATES 125 MG ONE DAY AND THEN 250 MG THE NEXT DAY. ONE PER DAY)
  2. ZEBETA [Concomitant]
     Active Substance: BISOPROLOL FUMARATE
     Indication: CARDIAC DISORDER
     Dosage: 5 MG, 1X/DAY
     Dates: start: 2009
  3. COUMADIN [Concomitant]
     Active Substance: WARFARIN SODIUM
     Indication: COAGULOPATHY
     Dosage: UNK(DOSE IS MOSTLY 5 MG PER DAY.IF IT GOES UP TO HIGH, THE DOSEWILL GO DOWN 3MG)
     Dates: start: 2002
  4. PLAVIX [Concomitant]
     Active Substance: CLOPIDOGREL BISULFATE
     Dosage: UNK
     Dates: end: 2002
  5. DIGOXIN. [Concomitant]
     Active Substance: DIGOXIN
     Dosage: 250 MG, ALTERNATE DAY(ALTERNATES 125 MG ONE DAY AND THEN 250 MG THE NEXT DAY. ONE PER DAY)
  6. METFORMIN [Concomitant]
     Active Substance: METFORMIN HYDROCHLORIDE
     Indication: DIABETES MELLITUS
     Dosage: 500 MG, 1X/DAY
     Dates: start: 2009
  7. COUMADIN [Concomitant]
     Active Substance: WARFARIN SODIUM
     Indication: ATRIAL FIBRILLATION
  8. PERSANTINE [Concomitant]
     Active Substance: DIPYRIDAMOLE
     Dosage: UNK
  9. REVATIO [Suspect]
     Active Substance: SILDENAFIL CITRATE
     Indication: PULMONARY ARTERIAL HYPERTENSION
     Dosage: 20 MG, 3X/DAY [20 MG TAKES 1 TABLET EVERY 4-6 HOURS. TOTAL OF 3 PER DAY. TAKES AT MEAL TIMES]
  10. ASPIRIN (E.C.) [Concomitant]
     Active Substance: ASPIRIN
     Dosage: UNK
     Dates: end: 2002

REACTIONS (3)
  - Diarrhoea [Unknown]
  - Brain hypoxia [Unknown]
  - Renal disorder [Unknown]
